FAERS Safety Report 7985431-5 (Version None)
Quarter: 2011Q4

REPORT INFORMATION
  Report Type: 
  Country: None (occurrence: None)
  Receive Date: 20111216
  Receipt Date: 20111209
  Transmission Date: 20120403
  Serious: Yes (Hospitalization, Other)
  Sender: FDA-Public Use
  Company Number: US-B.I. PHARMACEUTICALS,INC./RIDGEFIELD-2011-BP-24699BP

PATIENT
  Age: 82 Year
  Sex: Female
  Weight: 81.6 kg

DRUGS (7)
  1. LOPRESSOR [Concomitant]
  2. AMBIEN [Concomitant]
  3. PRADAXA [Suspect]
     Indication: ATRIAL FIBRILLATION
     Dosage: 300 MG
     Route: 048
     Dates: end: 20111019
  4. NEXIUM [Concomitant]
  5. RAMIPRIL [Concomitant]
  6. LEXAPRO [Concomitant]
  7. PREDNISONE TAB [Concomitant]

REACTIONS (1)
  - DEEP VEIN THROMBOSIS [None]
